FAERS Safety Report 15474954 (Version 1)
Quarter: 2018Q4

REPORT INFORMATION
  Report Type: Spontaneous
  Country: US (occurrence: US)
  Receive Date: 20181008
  Receipt Date: 20181008
  Transmission Date: 20190205
  Serious: Yes (Death, Hospitalization)
  Sender: FDA-Public Use
  Company Number: US-TEVA-2018-US-961734

PATIENT
  Age: 35 Year
  Sex: Male

DRUGS (3)
  1. OXYCODONE HYDROCHLORIDE. [Suspect]
     Active Substance: OXYCODONE HYDROCHLORIDE
     Route: 065
  2. HYDROMORPHONE [Suspect]
     Active Substance: HYDROMORPHONE
     Dosage: TABLETS WERE CRUSHED AND A SUSPENSION WAS INJECTED INADVERTENTLY VIA INTRA-ARTERIAL ROUTE
     Route: 013
  3. ZOFRAN [Suspect]
     Active Substance: ONDANSETRON HYDROCHLORIDE
     Indication: NAUSEA
     Dosage: ORAL TABLETS WERE CRUSHED AND A SUSPENSION WAS INJECTED INADVERTENTLY VIA INTRAARTERIAL ROUTE
     Route: 013

REACTIONS (7)
  - Foreign body embolism [Unknown]
  - Intentional product use issue [Unknown]
  - Drug abuse [Unknown]
  - Microembolism [Unknown]
  - Unresponsive to stimuli [Fatal]
  - Cellulitis [Unknown]
  - Drug abuse [Fatal]
